APPROVED DRUG PRODUCT: DYMELOR
Active Ingredient: ACETOHEXAMIDE
Strength: 250MG
Dosage Form/Route: TABLET;ORAL
Application: N013378 | Product #002
Applicant: ELI LILLY INDUSTRIES INC
Approved: Approved Prior to Jan 1, 1982 | RLD: No | RS: No | Type: DISCN